FAERS Safety Report 6293628-8 (Version None)
Quarter: 2009Q3

REPORT INFORMATION
  Report Type: 
  Country: None (occurrence: None)
  Receive Date: 20090729
  Receipt Date: 20090720
  Transmission Date: 20100115
  Serious: Yes (Hospitalization, Disabling)
  Sender: FDA-Public Use
  Company Number: GXKR2009GB08241

PATIENT
  Age: 20 Year
  Sex: Male

DRUGS (2)
  1. CODEINE PHOSPHATE        (CODEINE PHOSPHATE) UNKNOWN [Suspect]
     Indication: PAIN
     Dosage: ORAL
     Route: 048
     Dates: start: 20090624, end: 20090625
  2. DICLOFENAC (DICLOFENAC) [Concomitant]

REACTIONS (2)
  - MUSCLE RIGIDITY [None]
  - MUSCLE SPASMS [None]
